FAERS Safety Report 5194052-1 (Version None)
Quarter: 2006Q4

REPORT INFORMATION
  Report Type: 
  Country: None (occurrence: None)
  Receive Date: 20061228
  Receipt Date: 20061219
  Transmission Date: 20070319
  Serious: Yes (Hospitalization)
  Sender: FDA-Public Use
  Company Number: ES-ELI_LILLY_AND_COMPANY-ES200612003845

PATIENT
  Sex: Female

DRUGS (2)
  1. FORTEO [Suspect]
     Indication: OSTEOPOROSIS
     Dosage: 20 UG, DAILY (1/D)
     Route: 058
     Dates: start: 20060601
  2. ANTIINFLAMMATORY/ANTIRHEUMATIC PRODUCTS [Concomitant]
     Indication: MUSCULOSKELETAL PAIN

REACTIONS (4)
  - DRUG HYPERSENSITIVITY [None]
  - HYPERTENSION [None]
  - SWELLING FACE [None]
  - SWOLLEN TONGUE [None]
